FAERS Safety Report 11559789 (Version 1)
Quarter: 2015Q3

REPORT INFORMATION
  Report Type: Spontaneous
  Country: US (occurrence: US)
  Receive Date: 20150916
  Receipt Date: 20150916
  Transmission Date: 20151125
  Serious: No
  Sender: FDA-Public Use
  Company Number: US-ELI_LILLY_AND_COMPANY-US200808005668

PATIENT
  Age: 51 Year
  Sex: Female
  Weight: 49.43 kg

DRUGS (7)
  1. PREVACID [Concomitant]
     Active Substance: LANSOPRAZOLE
  2. LIBRAX [Concomitant]
     Active Substance: CHLORDIAZEPOXIDE HYDROCHLORIDE\CLIDINIUM BROMIDE
  3. FLUOXETINE [Concomitant]
     Active Substance: FLUOXETINE\FLUOXETINE HYDROCHLORIDE
  4. CALCIUM [Concomitant]
     Active Substance: CALCIUM
  5. FORTEO [Suspect]
     Active Substance: TERIPARATIDE
     Indication: OSTEOPOROSIS
     Dosage: 20 UG, DAILY (1/D)
     Dates: start: 200705
  6. LAMICTAL [Concomitant]
     Active Substance: LAMOTRIGINE
  7. ALPRAZOLAM. [Concomitant]
     Active Substance: ALPRAZOLAM

REACTIONS (10)
  - Mean cell haemoglobin concentration increased [Unknown]
  - Granulocyte count decreased [Unknown]
  - Scan bone marrow abnormal [Unknown]
  - White blood cell count decreased [Unknown]
  - Blood calcium increased [Unknown]
  - Mean cell volume abnormal [Unknown]
  - Foot fracture [Recovered/Resolved]
  - Arthralgia [Recovered/Resolved]
  - Blood alkaline phosphatase increased [Unknown]
  - Red blood cell count decreased [Unknown]

NARRATIVE: CASE EVENT DATE: 200710
